FAERS Safety Report 6773257-X (Version None)
Quarter: 2010Q2

REPORT INFORMATION
  Report Type: 
  Country: None (occurrence: None)
  Receive Date: 20100616
  Receipt Date: 20100607
  Transmission Date: 20101027
  Serious: Yes (Hospitalization)
  Sender: FDA-Public Use
  Company Number: GB-ABBOTT-10P-167-0650217-00

PATIENT
  Sex: Female

DRUGS (1)
  1. HUMIRA [Suspect]
     Indication: INFERTILITY
     Dosage: DOSE NOT REPORTED
     Dates: start: 20100524

REACTIONS (4)
  - HYPERAESTHESIA [None]
  - INJECTION SITE REACTION [None]
  - RASH [None]
  - RASH MACULO-PAPULAR [None]
